FAERS Safety Report 24847501 (Version 1)
Quarter: 2025Q1

REPORT INFORMATION
  Report Type: Other
  Country: TR (occurrence: TR)
  Receive Date: 20250116
  Receipt Date: 20250116
  Transmission Date: 20250409
  Serious: Yes (Hospitalization, Other)
  Sender: DEXCEL
  Company Number: TR-DEXPHARM-2025-0538

PATIENT
  Age: 57 Year
  Sex: Male

DRUGS (3)
  1. DICLOFENAC [Suspect]
     Active Substance: DICLOFENAC
  2. ACETAMINOPHEN [Suspect]
     Active Substance: ACETAMINOPHEN
  3. FLURBIPROFEN [Suspect]
     Active Substance: FLURBIPROFEN

REACTIONS (1)
  - Protein-losing gastroenteropathy [Recovered/Resolved]
